FAERS Safety Report 25059982 (Version 1)
Quarter: 2025Q1

REPORT INFORMATION
  Report Type: Spontaneous
  Country: US (occurrence: None)
  Receive Date: 20250310
  Receipt Date: 20250310
  Transmission Date: 20250408
  Serious: No
  Sender: FDA-CTU
  Company Number: None

PATIENT
  Age: 4 Year
  Sex: Male
  Weight: 18.9 kg

DRUGS (3)
  1. BLISTEX [Suspect]
     Active Substance: BENZOCAINE
     Indication: Chapped lips
     Route: 061
     Dates: start: 20250310, end: 20250310
  2. Kids multivitamin [Concomitant]
  3. CHILDREN CLARITIN ALLERGY [Concomitant]
     Active Substance: LORATADINE

REACTIONS (1)
  - Lip swelling [None]

NARRATIVE: CASE EVENT DATE: 20250310
